FAERS Safety Report 9717431 (Version 1)
Quarter: 2013Q4

REPORT INFORMATION
  Report Type: Spontaneous
  Country: US (occurrence: US)
  Receive Date: 20131127
  Receipt Date: 20131127
  Transmission Date: 20140711
  Serious: No
  Sender: FDA-Public Use
  Company Number: US-GILEAD-2008-0019640

PATIENT
  Age: 79 Year
  Sex: Female
  Weight: 70.76 kg

DRUGS (10)
  1. LETAIRIS [Suspect]
     Indication: PULMONARY ARTERIAL HYPERTENSION
     Route: 048
     Dates: start: 20081205
  2. DIOVAN HCT [Concomitant]
  3. COREG [Concomitant]
  4. PREDNISONE [Concomitant]
  5. ASPIRIN [Concomitant]
  6. XOPENEX [Concomitant]
  7. METAMUCIL [Concomitant]
  8. PEPTO BISMOL [Concomitant]
  9. CALCIUM [Concomitant]
  10. VITAMIN C [Concomitant]

REACTIONS (2)
  - Hot flush [Unknown]
  - Oedema peripheral [Unknown]
